FAERS Safety Report 4404279-1 (Version None)
Quarter: 2004Q3

REPORT INFORMATION
  Report Type: 
  Country: None (occurrence: None)
  Receive Date: 20040721
  Receipt Date: 20040721
  Transmission Date: 20050211
  Serious: Yes (Hospitalization)
  Sender: FDA-Public Use
  Company Number: None

PATIENT
  Age: 62 Year
  Sex: Male
  Weight: 103 kg

DRUGS (8)
  1. COUMADIN [Suspect]
     Indication: PHLEBOTHROMBOSIS
     Dosage: 5 MG ORAL
     Route: 048
  2. LEVOTHYROXINE SODIUM [Concomitant]
  3. DOCUSATE NA [Concomitant]
  4. HYDROCODONE/ACETAMINOPHEN [Concomitant]
  5. FUROSEMIDE [Concomitant]
  6. GLYBURIDE [Concomitant]
  7. POTASSIUM CHLORIDE [Concomitant]
  8. ACETAMINOPHEN [Concomitant]

REACTIONS (1)
  - INTERNATIONAL NORMALISED RATIO INCREASED [None]
